FAERS Safety Report 6276449-1 (Version None)
Quarter: 2009Q3

REPORT INFORMATION
  Report Type: 
  Country: None (occurrence: None)
  Receive Date: 20090722
  Receipt Date: 20090715
  Transmission Date: 20100115
  Serious: Yes (Hospitalization)
  Sender: FDA-Public Use
  Company Number: US-MYLANLABS-2009S1011132

PATIENT
  Age: 55 Year
  Sex: Male
  Weight: 115.21 kg

DRUGS (15)
  1. ALPRAZOLAM [Suspect]
     Indication: ANXIETY
     Dosage: MAXIMUM OF THREE TABLETS DAILY
     Route: 048
     Dates: start: 20071201, end: 20090615
  2. ALPRAZOLAM [Suspect]
     Route: 048
     Dates: start: 20090618
  3. PRISTIQ [Concomitant]
  4. TRICOR [Concomitant]
  5. HYZAAR [Concomitant]
     Route: 048
  6. NOVOLOG [Concomitant]
     Indication: DIABETES MELLITUS
     Dosage: SLIDING SCALE FROM 18-26 UNITS WITH 3 UNIT INCREASE
  7. LANTUS [Concomitant]
     Indication: DIABETES MELLITUS
     Route: 058
  8. METFORMIN HCL [Concomitant]
     Indication: DIABETES MELLITUS
     Route: 048
  9. PLAVIX [Concomitant]
  10. LOVAZA [Concomitant]
  11. MULTI-VITAMIN [Concomitant]
  12. PRILOSEC [Concomitant]
     Route: 048
  13. AMLODIPINE [Concomitant]
  14. CRESTOR [Concomitant]
     Route: 048
  15. ALLEGRA D 24 HOUR [Concomitant]

REACTIONS (6)
  - AMNESIA [None]
  - INSOMNIA [None]
  - MUSCULAR WEAKNESS [None]
  - OEDEMA PERIPHERAL [None]
  - PAIN IN EXTREMITY [None]
  - TRANSIENT ISCHAEMIC ATTACK [None]
